FAERS Safety Report 13701915 (Version 1)
Quarter: 2017Q2

REPORT INFORMATION
  Report Type: Spontaneous
  Country: BG (occurrence: BG)
  Receive Date: 20170629
  Receipt Date: 20170629
  Transmission Date: 20170830
  Serious: Yes (Hospitalization, Other)
  Sender: FDA-Public Use
  Company Number: BG-GLAXOSMITHKLINE-BG2017GSK096387

PATIENT
  Age: 25 Year
  Sex: Male

DRUGS (2)
  1. CEFOPERAZONE [Suspect]
     Active Substance: CEFOPERAZONE
     Indication: PRODUCT USED FOR UNKNOWN INDICATION
     Dosage: UNK
     Route: 042
     Dates: start: 201412, end: 201412
  2. CEFUROXIME. [Suspect]
     Active Substance: CEFUROXIME
     Indication: PRODUCT USED FOR UNKNOWN INDICATION
     Dosage: UNK
     Route: 048
     Dates: start: 201412, end: 201412

REACTIONS (12)
  - Pain [Recovering/Resolving]
  - Condition aggravated [Recovering/Resolving]
  - Necrosis [Recovering/Resolving]
  - Oral mucosa erosion [Recovering/Resolving]
  - Pneumonia [Recovering/Resolving]
  - Polyuria [Recovering/Resolving]
  - Hepatomegaly [Recovering/Resolving]
  - Conjunctivitis [Recovering/Resolving]
  - Stevens-Johnson syndrome [Recovering/Resolving]
  - Toxic epidermal necrolysis [Recovering/Resolving]
  - Tachycardia [Recovering/Resolving]
  - Blister [Recovering/Resolving]

NARRATIVE: CASE EVENT DATE: 201412
